FAERS Safety Report 7111291-0 (Version None)
Quarter: 2010Q4

REPORT INFORMATION
  Report Type: 
  Country: None (occurrence: None)
  Receive Date: 20101118
  Receipt Date: 20101104
  Transmission Date: 20110411
  Serious: Yes (Hospitalization)
  Sender: FDA-Public Use
  Company Number: PHHO2010US14984

PATIENT
  Sex: Female

DRUGS (10)
  1. PLACEBO COMP-PLA+ [Suspect]
     Indication: PANCREATIC NEUROENDOCRINE TUMOUR
     Dosage: UNK
  2. RAD 666 [Suspect]
     Indication: PANCREATIC NEUROENDOCRINE TUMOUR
     Dosage: 5MG
     Dates: start: 20100422, end: 20100930
  3. RAD 666 [Suspect]
     Dosage: 5MG
     Dates: start: 20101004, end: 20101018
  4. SANDOSTATIN LAR [Concomitant]
  5. CREON [Concomitant]
  6. ATENOLOL [Concomitant]
  7. GLIPIZIDE [Concomitant]
  8. METFORMIN HCL [Concomitant]
  9. FEXOFENADINE [Concomitant]
  10. ASPIRIN [Concomitant]

REACTIONS (6)
  - COUGH [None]
  - DIZZINESS [None]
  - HYPONATRAEMIA [None]
  - NAUSEA [None]
  - PNEUMONITIS [None]
  - SINUS DISORDER [None]
